FAERS Safety Report 5102748-2 (Version None)
Quarter: 2006Q3

REPORT INFORMATION
  Report Type: 
  Country: None (occurrence: None)
  Receive Date: 20060907
  Receipt Date: 20060828
  Transmission Date: 20061208
  Serious: Yes (Hospitalization)
  Sender: FDA-Public Use
  Company Number: HQWYE787601DEC05

PATIENT
  Age: 38 Year
  Sex: Male

DRUGS (8)
  1. RAPAMUNE [Suspect]
     Indication: PROPHYLAXIS AGAINST TRANSPLANT REJECTION
     Dosage: 6 MG 1X PER 1 DAY ORAL; SEE IMAGE
     Route: 048
     Dates: start: 20050826, end: 20050826
  2. RAPAMUNE [Suspect]
     Indication: PROPHYLAXIS AGAINST TRANSPLANT REJECTION
     Dosage: 6 MG 1X PER 1 DAY ORAL; SEE IMAGE
     Route: 048
     Dates: start: 20050827, end: 20051025
  3. RAPAMUNE [Suspect]
     Indication: PROPHYLAXIS AGAINST TRANSPLANT REJECTION
     Dosage: 6 MG 1X PER 1 DAY ORAL; SEE IMAGE
     Route: 048
     Dates: start: 20050826, end: 20060215
  4. CYCLOSPORINE [Suspect]
     Dosage: 500 MG DAILY TAPERING DOWN TO 125 MG DAILY ORAL; SEE IMAGE
     Route: 048
     Dates: start: 20050826, end: 20060628
  5. CYCLOSPORINE [Suspect]
     Dosage: 500 MG DAILY TAPERING DOWN TO 125 MG DAILY ORAL; SEE IMAGE
     Route: 048
     Dates: start: 20060629
  6. PREDNISONE TAB [Concomitant]
  7. CLONIDINE [Concomitant]
  8. BACTRIM [Concomitant]

REACTIONS (2)
  - BLOOD CREATININE INCREASED [None]
  - RENAL IMPAIRMENT [None]
